FAERS Safety Report 19584161 (Version 2)
Quarter: 2023Q2

REPORT INFORMATION
  Report Type: Spontaneous
  Country: IN (occurrence: IN)
  Receive Date: 20210720
  Receipt Date: 20230526
  Transmission Date: 20230722
  Serious: Yes (Other)
  Sender: FDA-Public Use
  Company Number: IN-MLMSERVICE-20210705-2983408-1

PATIENT
  Age: 38 Year
  Sex: Male

DRUGS (1)
  1. RISPERIDONE [Suspect]
     Active Substance: RISPERIDONE
     Indication: Psychotic disorder
     Dosage: UNKNOWN
     Route: 065

REACTIONS (2)
  - Thrombocytopenia [Recovering/Resolving]
  - Gingival bleeding [Unknown]
